FAERS Safety Report 18315348 (Version 3)
Quarter: 2020Q4

REPORT INFORMATION
  Report Type: Spontaneous
  Country: US (occurrence: US)
  Receive Date: 20200926
  Receipt Date: 20201128
  Transmission Date: 20210113
  Serious: Yes (Hospitalization, Other)
  Sender: FDA-Public Use
  Company Number: US-ACCORD-202550

PATIENT
  Age: 54 Year
  Sex: Male

DRUGS (4)
  1. TICAGRELOR. [Interacting]
     Active Substance: TICAGRELOR
     Indication: ACUTE MYOCARDIAL INFARCTION
  2. METOPROLOL. [Concomitant]
     Active Substance: METOPROLOL
     Indication: ACUTE MYOCARDIAL INFARCTION
  3. ATORVASTATIN/ATORVASTATIN CALCIUM [Suspect]
     Active Substance: ATORVASTATIN CALCIUM
     Indication: ACUTE MYOCARDIAL INFARCTION
  4. ATORVASTATIN/ATORVASTATIN CALCIUM [Interacting]
     Active Substance: ATORVASTATIN CALCIUM
     Indication: PRODUCT USED FOR UNKNOWN INDICATION

REACTIONS (2)
  - Drug interaction [Unknown]
  - Autoimmune myositis [Recovered/Resolved]

NARRATIVE: CASE EVENT DATE: 201810
